FAERS Safety Report 18004638 (Version 1)
Quarter: 2020Q3

REPORT INFORMATION
  Report Type: Report from Study
  Country: US (occurrence: US)
  Receive Date: 20200709
  Receipt Date: 20200709
  Transmission Date: 20201103
  Serious: Yes (Other)
  Sender: FDA-Public Use
  Company Number: US-GILEAD-2020-0476277

PATIENT
  Sex: Female

DRUGS (2)
  1. AMBRISENTAN [Suspect]
     Active Substance: AMBRISENTAN
     Indication: PULMONARY HYPERTENSION
     Dosage: 5 MG, QD
     Route: 065
     Dates: start: 20200623
  2. REVATIO [Concomitant]
     Active Substance: SILDENAFIL CITRATE

REACTIONS (12)
  - Visual impairment [Unknown]
  - Nasal injury [Unknown]
  - Hallucination [Unknown]
  - Fall [Unknown]
  - Hiatus hernia [Unknown]
  - Eating disorder [Not Recovered/Not Resolved]
  - Delusion [Unknown]
  - Illness [Unknown]
  - Lung disorder [Unknown]
  - Gastric disorder [Not Recovered/Not Resolved]
  - Ulcer [Unknown]
  - Obstruction [Unknown]
